FAERS Safety Report 15490134 (Version 1)
Quarter: 2018Q4

REPORT INFORMATION
  Report Type: Report from Study
  Country: GB (occurrence: GB)
  Receive Date: 20181011
  Receipt Date: 20181011
  Transmission Date: 20190205
  Serious: Yes (Hospitalization)
  Sender: FDA-Public Use
  Company Number: GB-MYLANLABS-2018M1075101

PATIENT
  Age: 12 Year
  Sex: Female
  Weight: 30 kg

DRUGS (10)
  1. EMULSIFYING                        /00662801/ [Concomitant]
     Indication: PRODUCT USED FOR UNKNOWN INDICATION
     Dosage: UNK (TOPICAL CREAM)
     Route: 061
     Dates: start: 201709
  2. FORTISIP [Concomitant]
     Active Substance: CARBOHYDRATES\FATTY ACIDS\MINERALS\PROTEIN\VITAMINS
     Indication: NUTRITIONAL SUPPLEMENTATION
     Dosage: 500 ML, QD
     Route: 048
     Dates: start: 201706
  3. BETNESOL                           /00008502/ [Concomitant]
     Active Substance: BETAMETHASONE SODIUM PHOSPHATE
     Indication: VASCULITIS
     Dosage: 1000 G, QD (MOUTHWASH)
     Dates: start: 20171128
  4. PENTASA [Concomitant]
     Active Substance: MESALAMINE
     Indication: PRODUCT USED FOR UNKNOWN INDICATION
     Dosage: 4000 MG, QD
     Route: 048
     Dates: start: 20110427
  5. HYDROUS [Concomitant]
     Indication: PRODUCT USED FOR UNKNOWN INDICATION
     Dosage: UNK (TOPICAL CREAM)
     Route: 061
     Dates: start: 201712
  6. AZATHIOPRINE. [Suspect]
     Active Substance: AZATHIOPRINE
     Indication: PRODUCT USED FOR UNKNOWN INDICATION
     Dosage: 50 MG, UNK (ALTERNATE DAYS)
     Route: 048
  7. DIPROBASE                          /01132701/ [Concomitant]
     Indication: ECZEMA
     Dosage: UNK (CREAM)
     Route: 061
     Dates: start: 20170403
  8. HUMIRA [Suspect]
     Active Substance: ADALIMUMAB
     Indication: PRODUCT USED FOR UNKNOWN INDICATION
     Dosage: 40 MG, Q2W
     Route: 058
     Dates: start: 20160210
  9. ACIFEROL D3 [Concomitant]
     Indication: VITAMIN SUPPLEMENTATION
     Dosage: 3 ML, QD
     Route: 048
     Dates: start: 201711
  10. SYTRON [Concomitant]
     Indication: IRON DEFICIENCY
     Dosage: 5 ML, QD
     Route: 048
     Dates: start: 20110909

REACTIONS (1)
  - Crohn^s disease [Recovered/Resolved]

NARRATIVE: CASE EVENT DATE: 20180329
